FAERS Safety Report 6172318-6 (Version None)
Quarter: 2009Q2

REPORT INFORMATION
  Report Type: 
  Country: None (occurrence: None)
  Receive Date: 20090429
  Receipt Date: 20080625
  Transmission Date: 20091009
  Serious: No
  Sender: FDA-Public Use
  Company Number: A0734775A

PATIENT
  Age: 39 Year
  Sex: Female

DRUGS (9)
  1. AMERGE [Suspect]
     Indication: MIGRAINE
     Dosage: 1TAB CYCLIC
     Route: 048
     Dates: start: 20080119
  2. MINOCYCLINE HCL [Concomitant]
  3. MULTI-VITAMINS [Concomitant]
  4. VIT B [Concomitant]
  5. UNKNOWN MEDICATION [Concomitant]
  6. VIT D [Concomitant]
  7. VIT E [Concomitant]
  8. CITALOPRAM [Concomitant]
  9. YAZ [Concomitant]

REACTIONS (2)
  - DRUG INEFFECTIVE [None]
  - THERAPEUTIC RESPONSE UNEXPECTED [None]
